FAERS Safety Report 5638392-8 (Version None)
Quarter: 2008Q1

REPORT INFORMATION
  Report Type: 
  Country: None (occurrence: None)
  Receive Date: 20080131
  Receipt Date: 20071105
  Transmission Date: 20080703
  Serious: No
  Sender: FDA-Public Use
  Company Number: 163-21880-07110247

PATIENT
  Age: 62 Year
  Sex: Male

DRUGS (2)
  1. REVLIMID [Suspect]
     Indication: MULTIPLE MYELOMA
     Dosage: 10 MG, 1 IN 1 D, ORAL ; 15 MG, 1 IN 1 D, ORAL
     Route: 048
     Dates: start: 20070628, end: 20070801
  2. REVLIMID [Suspect]
     Indication: MULTIPLE MYELOMA
     Dosage: 10 MG, 1 IN 1 D, ORAL ; 15 MG, 1 IN 1 D, ORAL
     Route: 048
     Dates: start: 20070912

REACTIONS (5)
  - ARTHRALGIA [None]
  - ASTHENIA [None]
  - HAEMOGLOBIN ABNORMAL [None]
  - MYALGIA [None]
  - PLATELET COUNT ABNORMAL [None]
